FAERS Safety Report 9342262 (Version 2)
Quarter: 2013Q3

REPORT INFORMATION
  Report Type: Spontaneous
  Country: IT (occurrence: None)
  Receive Date: 20130607
  Receipt Date: 20130712
  Transmission Date: 20140515
  Serious: Yes (Hospitalization)
  Sender: FDA-Public Use
  Company Number: IT-SEPTODONT-201301284

PATIENT
  Age: 68 Year
  Sex: Female

DRUGS (5)
  1. SCANDONEST L [Suspect]
     Indication: LOCAL ANAESTHESIA
     Dosage: 1 DF TOTAL DENTAL
     Dates: start: 20130513, end: 20130513
  2. GLIBOMET (GLIBENCLAMIDE) [Concomitant]
  3. CARDIOASPIRIN (ACETYLSALICYLIC ACID) [Concomitant]
  4. TRIATEC (RAMIPRIL) [Concomitant]
  5. PROVISACOR (ROSUVASTATIN) [Concomitant]

REACTIONS (2)
  - Dizziness [None]
  - Vomiting [None]
